FAERS Safety Report 13028609 (Version 1)
Quarter: 2016Q4

REPORT INFORMATION
  Report Type: Spontaneous
  Country: FR (occurrence: FR)
  Receive Date: 20161214
  Receipt Date: 20161214
  Transmission Date: 20170207
  Serious: Yes (Death, Other)
  Sender: FDA-Public Use
  Company Number: FR-PFM-2016-03009

PATIENT
  Age: 8 Year
  Sex: Female

DRUGS (6)
  1. NAVELBINE [Suspect]
     Active Substance: VINORELBINE TARTRATE
     Indication: EMBRYONAL RHABDOMYOSARCOMA
     Dosage: 21 MG, WEEKLY
     Route: 065
     Dates: start: 20161006, end: 20161021
  2. PARACETAMOL [Concomitant]
     Active Substance: ACETAMINOPHEN
     Indication: PRODUCT USED FOR UNKNOWN INDICATION
     Dosage: IF NEEDED
     Route: 065
  3. ZOPHREN [Concomitant]
     Active Substance: ONDANSETRON
     Indication: PRODUCT USED FOR UNKNOWN INDICATION
     Route: 048
  4. RIVOTRIL [Concomitant]
     Active Substance: CLONAZEPAM
     Indication: PRODUCT USED FOR UNKNOWN INDICATION
     Dosage: IF NEEDED
     Route: 065
  5. ENDOXAN [Suspect]
     Active Substance: CYCLOPHOSPHAMIDE
     Indication: EMBRYONAL RHABDOMYOSARCOMA
     Dosage: 21 MG, QD (1/DAY)
     Route: 048
     Dates: start: 20161006
  6. MICROPAKINE [Concomitant]
     Active Substance: VALPROIC ACID
     Indication: PRODUCT USED FOR UNKNOWN INDICATION
     Dosage: 100 MG, BID (2/DAY)
     Route: 065

REACTIONS (7)
  - Vomiting [Fatal]
  - Bradypnoea [Fatal]
  - Product use issue [Unknown]
  - Arrhythmia [Fatal]
  - Headache [Fatal]
  - Epilepsy [Fatal]
  - Off label use [Unknown]

NARRATIVE: CASE EVENT DATE: 20161104
